FAERS Safety Report 6354503-3 (Version None)
Quarter: 2009Q3

REPORT INFORMATION
  Report Type: 
  Country: None (occurrence: None)
  Receive Date: 20090909
  Receipt Date: 20090826
  Transmission Date: 20100115
  Serious: Yes (Hospitalization)
  Sender: FDA-Public Use
  Company Number: 09-082

PATIENT
  Age: 18 Month
  Sex: Male

DRUGS (1)
  1. CEFDINIR [Suspect]

REACTIONS (5)
  - CONVULSION [None]
  - DIARRHOEA [None]
  - OVERDOSE [None]
  - RETINAL HAEMORRHAGE [None]
  - VOMITING [None]
